FAERS Safety Report 22001808 (Version 2)
Quarter: 2023Q1

REPORT INFORMATION
  Report Type: Report from Study
  Country: US (occurrence: US)
  Receive Date: 20230216
  Receipt Date: 20230308
  Transmission Date: 20230418
  Serious: Yes (Hospitalization)
  Sender: FDA-Public Use
  Company Number: US-ABBVIE-4303985

PATIENT
  Age: 19 Year
  Sex: Female
  Weight: 67.5 kg

DRUGS (11)
  1. PLACEBO [Suspect]
     Active Substance: UNSPECIFIED INGREDIENT
     Indication: Dermatitis atopic
     Route: 048
     Dates: start: 20190403, end: 20190731
  2. HYDROXYZINE [Concomitant]
     Active Substance: HYDROXYZINE HYDROCHLORIDE
     Indication: Dermatitis atopic
     Dosage: TIME INTERVAL: AS NECESSARY
     Route: 048
     Dates: start: 20161115
  3. CETAPHIL DAILY FACIAL MOISTURIZER WITH SUNCREEN SPF 50 [Concomitant]
     Active Substance: OCTINOXATE\OCTISALATE\OCTOCRYLENE\OXYBENZONE\TITANIUM DIOXIDE
     Indication: Dry skin prophylaxis
     Dosage: 1 APPLICATION
     Route: 061
     Dates: start: 2012
  4. VITAMINS [Concomitant]
     Active Substance: VITAMINS
     Indication: Prophylaxis
     Route: 048
     Dates: start: 2016
  5. ALBUTEROL [Concomitant]
     Active Substance: ALBUTEROL
     Indication: Asthma
     Dosage: TIME INTERVAL: AS NECESSARY: 1 PUFF
     Route: 055
     Dates: start: 2012
  6. TRIAMCINOLONE ACETONIDE [Concomitant]
     Active Substance: TRIAMCINOLONE ACETONIDE
     Indication: Dermatitis atopic
     Dosage: 1 APPLICATION
     Route: 061
     Dates: start: 20190618
  7. ZYRTEC [Concomitant]
     Active Substance: CETIRIZINE HYDROCHLORIDE
     Indication: Dermatitis atopic
     Dosage: TIME INTERVAL: AS NECESSARY
     Route: 048
     Dates: start: 2016
  8. CEREVE MOISTURIZER [Concomitant]
     Indication: Dry skin prophylaxis
     Dosage: 1 APPLICATION
     Route: 061
     Dates: start: 2017
  9. COMPOUND W [Concomitant]
     Active Substance: SALICYLIC ACID
     Indication: Skin papilloma
     Dosage: 1 APPLICATION
     Route: 061
     Dates: start: 20200903
  10. UPADACITINIB [Suspect]
     Active Substance: UPADACITINIB
     Indication: Dermatitis atopic
     Route: 048
     Dates: start: 20190801, end: 20230207
  11. UPADACITINIB [Suspect]
     Active Substance: UPADACITINIB
     Indication: Dermatitis atopic
     Route: 048
     Dates: start: 20230214

REACTIONS (1)
  - Peritonsillar abscess [Not Recovered/Not Resolved]

NARRATIVE: CASE EVENT DATE: 20230201
